FAERS Safety Report 6656213-1 (Version None)
Quarter: 2010Q1

REPORT INFORMATION
  Report Type: 
  Country: None (occurrence: None)
  Receive Date: 20100326
  Receipt Date: 20100326
  Transmission Date: 20100710
  Serious: Yes (Life-Threatening, Hospitalization)
  Sender: FDA-Public Use
  Company Number: None

PATIENT
  Sex: Male
  Weight: 113.3993 kg

DRUGS (2)
  1. SIMVASTATIN [Suspect]
     Indication: LOW DENSITY LIPOPROTEIN
     Dosage: ONE DAILY PO
     Route: 048
     Dates: start: 19910101, end: 20040101
  2. EZETIMIBE [Suspect]
     Indication: LOW DENSITY LIPOPROTEIN
     Dosage: ONE DAILY PO
     Route: 048
     Dates: start: 20040101, end: 20100325

REACTIONS (5)
  - PHOTOSENSITIVITY REACTION [None]
  - PNEUMONIA STREPTOCOCCAL [None]
  - RENAL DISORDER [None]
  - RENAL FAILURE [None]
  - RENAL INJURY [None]
